FAERS Safety Report 6053465-6 (Version None)
Quarter: 2009Q1

REPORT INFORMATION
  Report Type: 
  Country: None (occurrence: None)
  Receive Date: 20090127
  Receipt Date: 20080430
  Transmission Date: 20090719
  Serious: No
  Sender: FDA-Public Use
  Company Number: US-TEVA-171065USA

PATIENT
  Sex: Male

DRUGS (2)
  1. COPAXONE [Suspect]
     Indication: MULTIPLE SCLEROSIS
     Route: 058
     Dates: start: 20020101, end: 20080401
  2. ALPRAZOLAM [Concomitant]

REACTIONS (1)
  - SWELLING FACE [None]
